FAERS Safety Report 14801209 (Version 1)
Quarter: 2020Q3

REPORT INFORMATION
  Report Type: Spontaneous
  Country: DE (occurrence: DE)
  Receive Date: 20180424
  Receipt Date: 20180424
  Transmission Date: 20201104
  Serious: Yes (Death)
  Sender: FDA-Public Use
  Company Number: DE-ELI_LILLY_AND_COMPANY-DE201804010156

PATIENT
  Age: 71 Year
  Sex: Female

DRUGS (65)
  1. POTASSIUM CHLORIDE. [Suspect]
     Active Substance: POTASSIUM CHLORIDE
     Dosage: 40 MMOL, DAILY
     Route: 042
     Dates: start: 20041102, end: 20041104
  2. BROTIZOLAM [Suspect]
     Active Substance: BROTIZOLAM
     Dosage: 1 DF, DAILY
     Route: 048
     Dates: start: 20041110, end: 20041110
  3. METOCLOPRAMIDE. [Suspect]
     Active Substance: METOCLOPRAMIDE
     Indication: NAUSEA
     Dosage: UNK UNK, UNKNOWN
     Route: 048
     Dates: start: 20041023, end: 20041023
  4. METOCLOPRAMIDE. [Suspect]
     Active Substance: METOCLOPRAMIDE
     Dosage: UNK UNK, UNKNOWN
     Route: 048
     Dates: start: 20041025, end: 20041028
  5. POTASSIUM CITRATE. [Suspect]
     Active Substance: POTASSIUM CITRATE
     Dosage: 1 DF, DAILY
     Route: 048
     Dates: start: 20041023, end: 20041025
  6. LORAZEPAM. [Suspect]
     Active Substance: LORAZEPAM
     Dosage: 1 DF, DAILY
     Route: 048
     Dates: start: 20041030, end: 20041030
  7. CLARITHROMYCIN. [Suspect]
     Active Substance: CLARITHROMYCIN
     Indication: PNEUMONIA
     Dosage: 250 MG, UNKNOWN
     Route: 048
     Dates: start: 20041018, end: 20041024
  8. BROTIZOLAM [Suspect]
     Active Substance: BROTIZOLAM
     Dosage: 1 DF, DAILY
     Route: 048
     Dates: start: 20041103, end: 20041103
  9. PROMETHAZINE HYDROCHLORIDE. [Concomitant]
     Active Substance: PROMETHAZINE HYDROCHLORIDE
     Indication: PRODUCT USED FOR UNKNOWN INDICATION
     Dosage: 10 DF, DAILY
     Route: 065
     Dates: start: 20041105, end: 20041108
  10. PERFALGAN [Concomitant]
     Active Substance: ACETAMINOPHEN
     Indication: PRODUCT USED FOR UNKNOWN INDICATION
     Dosage: UNK UNK, UNKNOWN
     Route: 065
     Dates: start: 20041021, end: 20041021
  11. PREDNISOLONE SODIUM SUCCINATE [Concomitant]
     Active Substance: PREDNISOLONE SODIUM SUCCINATE
     Indication: PRODUCT USED FOR UNKNOWN INDICATION
     Dosage: UNK UNK, UNKNOWN
     Route: 065
     Dates: start: 20041105, end: 20041110
  12. HYDROCHLOROTHIAZIDE. [Suspect]
     Active Substance: HYDROCHLOROTHIAZIDE
     Indication: ESSENTIAL HYPERTENSION
     Dosage: 25 MG, DAILY
     Route: 048
     Dates: start: 20041012, end: 20041031
  13. MELPERONE HYDROCHLORIDE [Suspect]
     Active Substance: MELPERONE HYDROCHLORIDE
     Indication: SLEEP DISORDER
     Dosage: 1 ML, DAILY
     Route: 065
     Dates: start: 20041030, end: 20041031
  14. LORAZEPAM. [Suspect]
     Active Substance: LORAZEPAM
     Indication: SLEEP DISORDER
     Dosage: 1 DF, DAILY
     Route: 048
     Dates: start: 20041014, end: 20041014
  15. ALLOPURINOL. [Suspect]
     Active Substance: ALLOPURINOL
     Indication: HYPERURICAEMIA
     Dosage: 1 DF, DAILY
     Route: 048
     Dates: start: 20041024, end: 20041102
  16. CARBAMAZEPINE. [Suspect]
     Active Substance: CARBAMAZEPINE
     Indication: AGITATION
     Dosage: 10 DF, DAILY
     Route: 048
     Dates: start: 20041101, end: 20041102
  17. SORTIS [Suspect]
     Active Substance: ATORVASTATIN
     Indication: HYPERCHOLESTEROLAEMIA
     Dosage: 40 MG, DAILY
     Route: 048
     Dates: start: 20040729, end: 20041102
  18. BELOC ZOK [Suspect]
     Active Substance: METOPROLOL SUCCINATE
     Indication: ACUTE MYOCARDIAL INFARCTION
     Dosage: UNK UNK, UNKNOWN
     Route: 048
     Dates: start: 20041012, end: 20041031
  19. FERROUS SULFATE. [Suspect]
     Active Substance: FERROUS SULFATE
     Indication: MINERAL SUPPLEMENTATION
     Dosage: 1 DF, DAILY
     Route: 048
     Dates: start: 20041103, end: 20041107
  20. SODIUM PERCHLORATE MONOHYDRATE [Suspect]
     Active Substance: SODIUM PERCHLORATE MONOHYDRATE
     Indication: HYPERTHYROIDISM
     Dosage: 60 GTT, DAILY
     Route: 048
     Dates: start: 20041006, end: 20041105
  21. FENISTIL [Concomitant]
     Active Substance: DIMETHINDENE
     Indication: PRODUCT USED FOR UNKNOWN INDICATION
     Dosage: 3 DF, DAILY
     Route: 065
     Dates: start: 20041104, end: 20041107
  22. HALOPERIDOL. [Concomitant]
     Active Substance: HALOPERIDOL
     Indication: PRODUCT USED FOR UNKNOWN INDICATION
     Dosage: 40 GTT, DAILY
     Route: 065
     Dates: start: 20041104, end: 20041105
  23. POLYSPECTRAN                       /00038301/ [Concomitant]
     Indication: PRODUCT USED FOR UNKNOWN INDICATION
     Dosage: 3 DF, DAILY
     Route: 065
     Dates: start: 20041108
  24. TAZOBACTAM [Concomitant]
     Active Substance: TAZOBACTAM
     Indication: PRODUCT USED FOR UNKNOWN INDICATION
     Dosage: 13.5 MG, DAILY
     Dates: start: 20041007, end: 20041015
  25. POTASSIUM CHLORIDE. [Suspect]
     Active Substance: POTASSIUM CHLORIDE
     Indication: HYPOKALAEMIA
     Dosage: UNK UNK, UNKNOWN
     Route: 065
     Dates: start: 20041025, end: 20041027
  26. METHIMAZOLE. [Suspect]
     Active Substance: METHIMAZOLE
     Indication: HYPERTHYROIDISM
     Dosage: 50 MG, UNKNOWN
     Route: 048
     Dates: start: 20041006, end: 20041105
  27. TOREM                              /01036501/ [Suspect]
     Active Substance: TORSEMIDE
     Dosage: UNK UNK, UNKNOWN
     Route: 048
     Dates: start: 20041102, end: 20041105
  28. CLOPIDOGREL [Suspect]
     Active Substance: CLOPIDOGREL BISULFATE
     Indication: THROMBOSIS PROPHYLAXIS
     Dosage: 150 MG, DAILY
     Route: 048
     Dates: start: 20041005, end: 20041107
  29. ELECTROLYTES NOS [Suspect]
     Active Substance: ELECTROLYTES NOS
     Indication: FLUID REPLACEMENT
     Dosage: UNK UNK, UNKNOWN
     Route: 042
     Dates: start: 20041002, end: 20041111
  30. DEXTROSE. [Suspect]
     Active Substance: DEXTROSE
     Dosage: UNK UNK, UNKNOWN
     Route: 042
     Dates: start: 20041108, end: 20041108
  31. UNACID                             /00903602/ [Concomitant]
     Active Substance: SULTAMICILLIN TOSYLATE
     Indication: PRODUCT USED FOR UNKNOWN INDICATION
     Dosage: 3 G, DAILY
     Route: 065
     Dates: start: 20041106, end: 20041106
  32. NOVALGIN                           /00169801/ [Concomitant]
     Active Substance: ACETAMINOPHEN\CAFFEINE\PROPYPHENAZONE
     Indication: PRODUCT USED FOR UNKNOWN INDICATION
     Dosage: 20 GTT, DAILY
     Route: 065
     Dates: start: 20041017, end: 20041017
  33. LANTUS [Suspect]
     Active Substance: INSULIN GLARGINE
     Indication: DIABETES MELLITUS
     Dosage: UNK UNK, UNKNOWN
     Route: 058
     Dates: start: 20040729, end: 20041110
  34. DIGITOXIN [Suspect]
     Active Substance: DIGITOXIN
     Indication: CARDIAC FAILURE
     Dosage: UNK UNK, UNKNOWN
     Route: 048
     Dates: start: 20041014, end: 20041027
  35. METOPROLOL. [Suspect]
     Active Substance: METOPROLOL
     Indication: PRODUCT USED FOR UNKNOWN INDICATION
     Dosage: 200 MG, DAILY
     Route: 048
     Dates: start: 20041101, end: 20041107
  36. POTASSIUM CHLORIDE. [Suspect]
     Active Substance: POTASSIUM CHLORIDE
     Dosage: UNK UNK, UNKNOWN
     Route: 065
     Dates: start: 20041101, end: 20041101
  37. BROTIZOLAM [Suspect]
     Active Substance: BROTIZOLAM
     Indication: SLEEP DISORDER
     Dosage: 1 DF, DAILY
     Route: 048
     Dates: start: 20041015, end: 20041024
  38. SODIUM CHLORIDE. [Suspect]
     Active Substance: SODIUM CHLORIDE
     Indication: FLUID REPLACEMENT
     Dosage: 500 ML, DAILY
     Route: 042
     Dates: start: 20041024, end: 20041027
  39. PANTOZOL [Suspect]
     Active Substance: PANTOPRAZOLE SODIUM
     Indication: GASTROINTESTINAL ULCER
     Dosage: 40 MG, DAILY
     Route: 048
     Dates: start: 20041007, end: 20041031
  40. PERFALGAN [Concomitant]
     Active Substance: ACETAMINOPHEN
     Dosage: 1 G, UNKNOWN
     Route: 065
     Dates: start: 20041014, end: 20041014
  41. TAVANIC [Concomitant]
     Active Substance: LEVOFLOXACIN
     Indication: PRODUCT USED FOR UNKNOWN INDICATION
     Dosage: 500 MG, DAILY
     Route: 065
     Dates: start: 20041107, end: 20041110
  42. DERMATOP [Concomitant]
     Active Substance: PREDNICARBATE
     Indication: PRODUCT USED FOR UNKNOWN INDICATION
     Dosage: 2 DF, DAILY
     Route: 065
     Dates: start: 20041110, end: 20041110
  43. POTASSIUM CHLORIDE. [Suspect]
     Active Substance: POTASSIUM CHLORIDE
     Dosage: 40 MMOL, DAILY
     Route: 042
     Dates: start: 20041027, end: 20041027
  44. METOCLOPRAMIDE. [Suspect]
     Active Substance: METOCLOPRAMIDE
     Dosage: UNK UNK, UNKNOWN
     Route: 048
     Dates: start: 20041024, end: 20041025
  45. FUROSEMIDE. [Suspect]
     Active Substance: FUROSEMIDE
     Indication: POLYURIA
     Dosage: 10 MG, DAILY
     Route: 048
     Dates: start: 20041101, end: 20041101
  46. POTASSIUM CITRATE. [Suspect]
     Active Substance: POTASSIUM CITRATE
     Indication: HYPOKALAEMIA
     Dosage: 1 DF, DAILY
     Route: 048
     Dates: start: 20001102, end: 20041104
  47. RAMIPRIL. [Suspect]
     Active Substance: RAMIPRIL
     Dosage: 5 DF, DAILY
     Route: 048
     Dates: start: 20041101, end: 20041102
  48. MORPHINE [Concomitant]
     Active Substance: MORPHINE
     Indication: PRODUCT USED FOR UNKNOWN INDICATION
     Dosage: 2 DF, DAILY
     Dates: start: 20041106, end: 20041109
  49. FENISTIL [Concomitant]
     Active Substance: DIMETHINDENE
     Dosage: 1 DF, UNKNOWN
     Route: 065
     Dates: start: 20041105, end: 20041105
  50. DIFLUCAN [Concomitant]
     Active Substance: FLUCONAZOLE
     Indication: PRODUCT USED FOR UNKNOWN INDICATION
     Dosage: 1 DF, DAILY
     Route: 065
     Dates: start: 20041106, end: 20041110
  51. HUMALOG [Suspect]
     Active Substance: INSULIN LISPRO
     Indication: DIABETES MELLITUS
     Dosage: 3 DF, DAILY
     Route: 058
     Dates: start: 20040729, end: 20041110
  52. MELPERONE HYDROCHLORIDE [Suspect]
     Active Substance: MELPERONE HYDROCHLORIDE
     Dosage: 1 ML, DAILY
     Route: 048
     Dates: start: 20041102, end: 20041107
  53. RAMIPRIL. [Suspect]
     Active Substance: RAMIPRIL
     Indication: ESSENTIAL HYPERTENSION
     Dosage: 2.5 MG, DAILY
     Route: 048
     Dates: start: 20041007, end: 20041031
  54. DEXTROSE. [Suspect]
     Active Substance: DEXTROSE
     Indication: HYPOGLYCAEMIA
     Dosage: UNK UNK, UNKNOWN
     Route: 042
     Dates: start: 20041102, end: 20041102
  55. DIGITOXIN [Concomitant]
     Active Substance: DIGITOXIN
     Indication: PRODUCT USED FOR UNKNOWN INDICATION
     Dosage: 5 DF, DAILY
     Dates: start: 20041106, end: 20041108
  56. DIGITOXIN [Suspect]
     Active Substance: DIGITOXIN
     Dosage: UNK UNK, UNKNOWN
     Route: 048
     Dates: start: 20041103, end: 20041111
  57. FUROSEMIDE. [Suspect]
     Active Substance: FUROSEMIDE
     Dosage: 40 MG, DAILY
     Route: 042
     Dates: start: 20041102, end: 20041111
  58. PIPAMPERONE [Suspect]
     Active Substance: PIPAMPERONE
     Indication: DISORIENTATION
     Dosage: 1 DF, DAILY
     Route: 048
     Dates: start: 20041103, end: 20041104
  59. POTASSIUM CITRATE. [Suspect]
     Active Substance: POTASSIUM CITRATE
     Dosage: 1 DF, DAILY
     Route: 048
     Dates: start: 20041015, end: 20041020
  60. CLEXANE [Suspect]
     Active Substance: ENOXAPARIN SODIUM
     Indication: THROMBOSIS
     Dosage: 80 ML, DAILY
     Route: 058
     Dates: start: 20041011, end: 20041028
  61. ACETYLSALICYLIC ACID [Suspect]
     Active Substance: ASPIRIN
     Indication: THROMBOSIS PROPHYLAXIS
     Dosage: 100 MG, DAILY
     Route: 048
     Dates: start: 20040729, end: 20041107
  62. TOREM                              /01036501/ [Suspect]
     Active Substance: TORSEMIDE
     Indication: RENAL FAILURE
     Dosage: UNK UNK, UNKNOWN
     Route: 048
     Dates: start: 20041012, end: 20041031
  63. LOPERAMIDE [Suspect]
     Active Substance: LOPERAMIDE
     Indication: DIARRHOEA
     Dosage: 2 DF, DAILY
     Route: 048
     Dates: start: 20041031, end: 20041031
  64. FLUNITRAZEPAM [Concomitant]
     Active Substance: FLUNITRAZEPAM
     Indication: PRODUCT USED FOR UNKNOWN INDICATION
     Dosage: 1 MG, DAILY
     Route: 065
     Dates: start: 20041018, end: 20041018
  65. ZYRTEC [Concomitant]
     Active Substance: CETIRIZINE HYDROCHLORIDE
     Indication: PRODUCT USED FOR UNKNOWN INDICATION
     Dosage: 2 DF, DAILY
     Route: 065
     Dates: start: 20041110, end: 20041110

REACTIONS (10)
  - Blister [Fatal]
  - Lip erosion [Fatal]
  - Conjunctivitis [Fatal]
  - Nikolsky^s sign [Fatal]
  - Oral disorder [Fatal]
  - Ocular hyperaemia [Fatal]
  - Swollen tongue [Fatal]
  - Purpura [Fatal]
  - Pruritus [Fatal]
  - Stevens-Johnson syndrome [Fatal]

NARRATIVE: CASE EVENT DATE: 20041104
